FAERS Safety Report 7118592-0 (Version None)
Quarter: 2010Q4

REPORT INFORMATION
  Report Type: 
  Country: None (occurrence: None)
  Receive Date: 20101027
  Receipt Date: 20100603
  Transmission Date: 20110411
  Serious: Yes (Other)
  Sender: FDA-Public Use
  Company Number: 1000012645

PATIENT
  Age: 49 Year
  Sex: Female

DRUGS (8)
  1. CAMPRAL [Suspect]
     Indication: ALCOHOLISM
     Dosage: 666 MG (333 MG,2 IN 1 D),ORAL
     Route: 048
     Dates: start: 20100319
  2. ADDERALL 10 [Concomitant]
  3. LISINOPRIL [Concomitant]
  4. LUVOX (50 MILLIGRAM) [Concomitant]
  5. SIMVASTATIN [Concomitant]
  6. RISPERDAL [Concomitant]
  7. SERTRALINE HYDROCHLORIDE [Concomitant]
  8. LEVOTHYROXINE [Concomitant]

REACTIONS (3)
  - BLOOD PRESSURE INCREASED [None]
  - CONFUSIONAL STATE [None]
  - NAUSEA [None]
